FAERS Safety Report 8817796 (Version 4)
Quarter: 2012Q4

REPORT INFORMATION
  Report Type: 
  Country: GB (occurrence: GB)
  Receive Date: 20121001
  Receipt Date: 20121030
  Transmission Date: 20130627
  Serious: Yes (Other)
  Sender: FDA-Public Use
  Company Number: PHFR2012GB005162

PATIENT
  Sex: Female

DRUGS (1)
  1. CLOZARIL [Suspect]
     Indication: SCHIZOPHRENIA
     Route: 048
     Dates: start: 20091012, end: 20120902

REACTIONS (4)
  - Fall [Unknown]
  - Urinary tract infection [Unknown]
  - Malaise [Unknown]
  - Eating disorder [Unknown]
